FAERS Safety Report 9799575 (Version 1)
Quarter: 2014Q1

REPORT INFORMATION
  Report Type: Spontaneous
  Country: US (occurrence: None)
  Receive Date: 20140103
  Receipt Date: 20140103
  Transmission Date: 20141002
  Serious: No
  Sender: FDA-Public Use
  Company Number: None

PATIENT
  Age: 47 Year
  Sex: Female

DRUGS (1)
  1. ENBREL [Suspect]
     Indication: ARTHRITIS
     Route: 058
     Dates: start: 20131015

REACTIONS (5)
  - Muscular weakness [None]
  - Nausea [None]
  - Dizziness [None]
  - Balance disorder [None]
  - Diarrhoea [None]
